FAERS Safety Report 6440832-1 (Version None)
Quarter: 2009Q4

REPORT INFORMATION
  Report Type: 
  Country: None (occurrence: None)
  Receive Date: 20091116
  Receipt Date: 20091105
  Transmission Date: 20100525
  Serious: Yes (Hospitalization)
  Sender: FDA-Public Use
  Company Number: US-ASTRAZENECA-2008UW27450

PATIENT
  Age: 18970 Day
  Sex: Male
  Weight: 81.6 kg

DRUGS (1)
  1. SEROQUEL [Suspect]
     Indication: SLEEP DISORDER
     Route: 048
     Dates: start: 20030618, end: 20080401

REACTIONS (3)
  - ARTHROPATHY [None]
  - DIABETES MELLITUS [None]
  - PANCREATITIS [None]
